FAERS Safety Report 8605442 (Version 2)
Quarter: 2014Q3

REPORT INFORMATION
  Report Type: Spontaneous
  Country: US (occurrence: US)
  Receive Date: 20120608
  Receipt Date: 20140709
  Transmission Date: 20150326
  Serious: Yes (Hospitalization)
  Sender: FDA-Public Use
  Company Number: US-GLAXOSMITHKLINE-A0887135A

PATIENT
  Sex: Female

DRUGS (12)
  1. NEXIUM [Concomitant]
     Active Substance: ESOMEPRAZOLE MAGNESIUM
  2. EFFEXOR [Concomitant]
     Active Substance: VENLAFAXINE HYDROCHLORIDE
  3. AVANDIA [Suspect]
     Active Substance: ROSIGLITAZONE MALEATE
     Indication: TYPE 2 DIABETES MELLITUS
     Dosage: 8MG PER DAY
     Route: 048
     Dates: start: 20020827, end: 20090526
  4. ESTRADIOL. [Concomitant]
     Active Substance: ESTRADIOL
  5. GLIPIZIDE. [Concomitant]
     Active Substance: GLIPIZIDE
  6. TRICOR [Concomitant]
     Active Substance: FENOFIBRATE
  7. ALBUTEROL. [Concomitant]
     Active Substance: ALBUTEROL
  8. CELEBREX [Concomitant]
     Active Substance: CELECOXIB
  9. CLONAZEPAM. [Concomitant]
     Active Substance: CLONAZEPAM
  10. SEROQUEL [Concomitant]
     Active Substance: QUETIAPINE FUMARATE
  11. GABAPENTIN. [Concomitant]
     Active Substance: GABAPENTIN
  12. MAVIK [Concomitant]
     Active Substance: TRANDOLAPRIL

REACTIONS (4)
  - Coronary artery disease [Unknown]
  - Renal failure [Unknown]
  - Cardiac failure congestive [Not Recovered/Not Resolved]
  - Transient ischaemic attack [Unknown]
